FAERS Safety Report 23208542 (Version 1)
Quarter: 2023Q4

REPORT INFORMATION
  Report Type: Spontaneous
  Country: JP (occurrence: JP)
  Receive Date: 20231121
  Receipt Date: 20231121
  Transmission Date: 20240110
  Serious: Yes (Other)
  Sender: FDA-Public Use
  Company Number: JP-TAKEDA-2023TJP015037

PATIENT

DRUGS (1)
  1. LEUPLIN [Suspect]
     Active Substance: LEUPROLIDE ACETATE
     Indication: Short stature
     Dosage: 1.88 MILLIGRAM, Q4WEEKS?FOR INJECTION 1.88 MG
     Route: 065

REACTIONS (1)
  - Deafness [Unknown]

NARRATIVE: CASE EVENT DATE: 20231101
